FAERS Safety Report 7440148-0 (Version None)
Quarter: 2011Q2

REPORT INFORMATION
  Report Type: 
  Country: None (occurrence: None)
  Receive Date: 20110427
  Receipt Date: 20110418
  Transmission Date: 20111010
  Serious: Yes (Death)
  Sender: FDA-Public Use
  Company Number: JP-ROCHE-772280

PATIENT
  Age: 60 Year
  Sex: Male

DRUGS (2)
  1. COPEGUS [Suspect]
     Dosage: DOSAGE IS UNCERTAIN
     Route: 048
  2. PEGASYS [Suspect]
     Indication: CHRONIC HEPATITIS
     Route: 058

REACTIONS (1)
  - SUBARACHNOID HAEMORRHAGE [None]
